FAERS Safety Report 5405887-1 (Version None)
Quarter: 2007Q3

REPORT INFORMATION
  Report Type: 
  Country: None (occurrence: None)
  Receive Date: 20070806
  Receipt Date: 20070726
  Transmission Date: 20080115
  Serious: Yes (Hospitalization)
  Sender: FDA-Public Use
  Company Number: CH-AMGEN-US234722

PATIENT
  Age: 54 Year
  Sex: Male
  Weight: 70 kg

DRUGS (5)
  1. ENBREL [Suspect]
     Indication: RHEUMATOID ARTHRITIS
     Dosage: 50 MG PER WEEK
     Dates: start: 20070605
  2. ENBREL [Suspect]
     Dosage: 50 MG PER WEEK
     Dates: start: 20070726
  3. DAFALGAN [Concomitant]
     Route: 048
  4. FOSAVANCE [Concomitant]
     Route: 048
  5. CALCIUM SANDOZ FORTE D [Concomitant]
     Route: 048

REACTIONS (2)
  - RASH GENERALISED [None]
  - RASH PRURITIC [None]
